FAERS Safety Report 26038880 (Version 1)
Quarter: 2025Q4

REPORT INFORMATION
  Report Type: Spontaneous
  Country: JP (occurrence: JP)
  Receive Date: 20251113
  Receipt Date: 20251113
  Transmission Date: 20260117
  Serious: Yes (Other)
  Sender: ASTELLAS
  Company Number: JP-ASTELLAS-2025-AER-061291

PATIENT
  Age: 51 Year
  Sex: Male

DRUGS (6)
  1. PROGRAF [Suspect]
     Active Substance: TACROLIMUS
     Indication: Cord blood transplant therapy
     Route: 065
     Dates: start: 202504
  2. VYXEOS [Concomitant]
     Active Substance: CYTARABINE\DAUNORUBICIN
     Indication: Acute myeloid leukaemia
     Route: 065
     Dates: start: 202503
  3. FLUDARABINE [Concomitant]
     Active Substance: FLUDARABINE PHOSPHATE
     Indication: Cord blood transplant therapy
     Route: 065
     Dates: start: 202504
  4. MELPHALAN [Concomitant]
     Active Substance: MELPHALAN
     Indication: Cord blood transplant therapy
     Route: 065
     Dates: start: 202504
  5. BUSULFAN [Concomitant]
     Active Substance: BUSULFAN
     Indication: Cord blood transplant therapy
     Route: 065
     Dates: start: 202504
  6. MYCOPHENOLATE MOFETIL [Concomitant]
     Active Substance: MYCOPHENOLATE MOFETIL
     Indication: Cord blood transplant therapy
     Route: 065
     Dates: start: 202504

REACTIONS (2)
  - Acute graft versus host disease [Unknown]
  - Pre-engraftment immune reaction [Unknown]
